FAERS Safety Report 7619209-9 (Version None)
Quarter: 2011Q3

REPORT INFORMATION
  Report Type: 
  Country: None (occurrence: None)
  Receive Date: 20110718
  Receipt Date: 20110708
  Transmission Date: 20111222
  Serious: Yes (Hospitalization, Other)
  Sender: FDA-Public Use
  Company Number: PHHY2011JP39261

PATIENT
  Sex: Male

DRUGS (4)
  1. LOXONIN [Suspect]
     Indication: ANALGESIC THERAPY
     Dosage: MATERNAL DOSE: 180 MG
     Route: 063
     Dates: start: 20110428, end: 20110503
  2. PENTAZOCINE LACTATE [Suspect]
     Indication: ANALGESIC THERAPY
     Dosage: UNK UKN, UNK
     Route: 063
     Dates: start: 20110427, end: 20110428
  3. VOLTAREN [Suspect]
     Indication: ANALGESIC THERAPY
     Dosage: UNK UKN, UNK
     Route: 063
     Dates: start: 20110428, end: 20110501
  4. FLURBIPROFEN [Suspect]
     Indication: ANALGESIC THERAPY
     Dosage: UNK UKN, UNK
     Route: 063
     Dates: start: 20110427, end: 20110427

REACTIONS (14)
  - EXPOSURE DURING BREAST FEEDING [None]
  - HAEMOGLOBIN DECREASED [None]
  - HAEMATOCRIT DECREASED [None]
  - GAMMA-GLUTAMYLTRANSFERASE INCREASED [None]
  - BLOOD LACTATE DEHYDROGENASE INCREASED [None]
  - RED BLOOD CELL COUNT DECREASED [None]
  - OXYGEN SATURATION DECREASED [None]
  - APNOEA [None]
  - WHITE BLOOD CELL COUNT INCREASED [None]
  - PLATELET COUNT DECREASED [None]
  - BLOOD BILIRUBIN INCREASED [None]
  - CYANOSIS NEONATAL [None]
  - HYPOTHERMIA [None]
  - BLOOD UREA DECREASED [None]
